FAERS Safety Report 4613884-9 (Version None)
Quarter: 2005Q1

REPORT INFORMATION
  Report Type: 
  Country: None (occurrence: None)
  Receive Date: 20050316
  Receipt Date: 20041223
  Transmission Date: 20050727
  Serious: Yes (Hospitalization)
  Sender: FDA-Public Use
  Company Number: 6012345

PATIENT
  Age: 71 Year
  Sex: Male

DRUGS (1)
  1. LEVOTHYROXINE SODIUM [Suspect]
     Route: 048
     Dates: start: 20040901, end: 20041001

REACTIONS (4)
  - PRURITUS [None]
  - RASH ERYTHEMATOUS [None]
  - RASH MACULAR [None]
  - SKIN LESION [None]
